FAERS Safety Report 6536853 (Version 2)
Quarter: 2013Q2

REPORT INFORMATION
  Report Type: Spontaneous
  Country: FR (occurrence: FR)
  Receive Date: 20080128
  Receipt Date: 20130506
  Transmission Date: 20140414
  Serious: Yes (Hospitalization)
  Sender: FDA-Public Use
  Company Number: FR-PFIZER INC-2008005935

PATIENT
  Age: 75 Year
  Sex: Female

DRUGS (10)
  1. TAHOR [Suspect]
     Dosage: 20 MG, 1X/DAY
     Route: 048
     Dates: start: 20070416, end: 20070704
  2. KARDEGIC [Suspect]
     Dosage: 160 MG, 1X/DAY
     Route: 048
     Dates: start: 200703, end: 20070705
  3. DI-ANTALVIC [Suspect]
     Dosage: 6 DF,DAILY
     Route: 048
     Dates: end: 20070703
  4. SECTRAL [Suspect]
     Dosage: 200 MG, 1X/DAY
     Route: 048
  5. SOLIAN [Suspect]
     Dosage: 100 MG, 1X/DAY
     Route: 048
     Dates: start: 20070604
  6. CALCITE D [Suspect]
     Dosage: 1 DF, 1X/DAY
     Route: 048
  7. ACTONEL [Suspect]
     Dosage: 35 MG, WEEKLY
     Route: 048
  8. SPECIAFOLDINE [Suspect]
     Route: 048
  9. DITROPAN [Concomitant]
  10. IMOVANE [Concomitant]
     Dates: end: 20070708

REACTIONS (2)
  - Cholestasis [Recovered/Resolved]
  - Hepatitis [Recovered/Resolved]
